FAERS Safety Report 6985580-4 (Version None)
Quarter: 2010Q3

REPORT INFORMATION
  Report Type: 
  Country: None (occurrence: None)
  Receive Date: 20100915
  Receipt Date: 20100903
  Transmission Date: 20110219
  Serious: Yes (Hospitalization)
  Sender: FDA-Public Use
  Company Number: CN-JNJFOC-20100808102

PATIENT
  Age: 28 Year
  Sex: Female

DRUGS (5)
  1. TYLENOL COLD [Suspect]
     Indication: INFLAMMATION
     Dosage: 2 TABLETS INITIALLY AND THEN 1 TABLET TWO SEPARATE TIMES
     Route: 065
  2. TYLENOL COLD [Suspect]
     Indication: PYREXIA
     Dosage: 2 TABLETS INITIALLY AND THEN 1 TABLET TWO SEPARATE TIMES
     Route: 065
  3. TYLENOL COLD [Suspect]
     Indication: NASOPHARYNGITIS
     Dosage: 2 TABLETS INITIALLY AND THEN 1 TABLET TWO SEPARATE TIMES
     Route: 065
  4. ANTIBIOTIC [Suspect]
     Indication: NASOPHARYNGITIS
     Route: 065
  5. CHINESE MEDICATION [Suspect]
     Indication: NASOPHARYNGITIS
     Route: 065

REACTIONS (1)
  - HEPATOTOXICITY [None]
